FAERS Safety Report 17460644 (Version 3)
Quarter: 2021Q1

REPORT INFORMATION
  Report Type: Report from Study
  Country: US (occurrence: US)
  Receive Date: 20200226
  Receipt Date: 20210306
  Transmission Date: 20210419
  Serious: Yes (Other)
  Sender: FDA-Public Use
  Company Number: NVSC2020US054365

PATIENT
  Sex: Female

DRUGS (2)
  1. GLEEVEC [Suspect]
     Active Substance: IMATINIB MESYLATE
     Indication: CHRONIC MYELOID LEUKAEMIA
     Dosage: UNK (FOR 2 YEARS)
     Route: 065
  2. XANAX [Concomitant]
     Active Substance: ALPRAZOLAM
     Indication: PRODUCT USED FOR UNKNOWN INDICATION
     Dosage: UNK
     Route: 065

REACTIONS (9)
  - Neoplasm malignant [Unknown]
  - Fall [Unknown]
  - Memory impairment [Unknown]
  - Dizziness [Unknown]
  - Remission not achieved [Unknown]
  - Bone density abnormal [Unknown]
  - Diarrhoea [Unknown]
  - Vomiting [Unknown]
  - Multiple sclerosis [Unknown]
